FAERS Safety Report 8937718 (Version 3)
Quarter: 2017Q3

REPORT INFORMATION
  Report Type: Spontaneous
  Country: GB (occurrence: GB)
  Receive Date: 20121130
  Receipt Date: 20170802
  Transmission Date: 20171128
  Serious: Yes (Hospitalization, Other)
  Sender: FDA-Public Use
  Company Number: GB-TEVA-364982ISR

PATIENT
  Age: 58 Year
  Sex: Male

DRUGS (22)
  1. ATORVASTATIN CALCIUM. [Concomitant]
     Active Substance: ATORVASTATIN CALCIUM
     Dosage: 40MG, UNK
  2. MORPHINE SULFATE. [Concomitant]
     Active Substance: MORPHINE SULFATE
     Dosage: 30 MG, UNK
  3. GTN [Concomitant]
     Active Substance: NITROGLYCERIN
     Dosage: 400 MCG/DOSE 2 PUFFS PRN
  4. SALBUTAMOL [Concomitant]
     Active Substance: ALBUTEROL
     Dosage: 2 PUFFS PRN
  5. BISOPROLOL [Concomitant]
     Active Substance: BISOPROLOL
     Dosage: 7.5MG, UNK
  6. RIVAROXABAN [Concomitant]
     Active Substance: RIVAROXABAN
     Dosage: 20 MG, UNK
     Dates: start: 201207
  7. ACETYLSALICYLIC ACID [Suspect]
     Active Substance: ASPIRIN
     Dosage: 75MG, UNK
     Route: 048
  8. PARACETAMOL [Concomitant]
     Active Substance: ACETAMINOPHEN
     Dosage: 1 MG PRN 4-6 HOURLY
  9. AMITRIPTYLINE [Concomitant]
     Active Substance: AMITRIPTYLINE
     Dosage: 20 MG, UNK
  10. LIRAGLUTIDE [Concomitant]
     Active Substance: LIRAGLUTIDE
     Dosage: 1.2MG, UNK
  11. PIZOTIFEN [Concomitant]
     Active Substance: PIZOTYLINE
     Dosage: 500 UG, UNK
  12. NICORANDIL [Suspect]
     Active Substance: NICORANDIL
     Dosage: 30 MG, 2X/DAY
     Route: 048
  13. ISMN [Suspect]
     Active Substance: ISOSORBIDE MONONITRATE
     Dosage: 60 MG, UNK
  14. ETANERCEPT [Suspect]
     Active Substance: ETANERCEPT
     Indication: RHEUMATOID ARTHRITIS
     Dosage: 50 MG, WEEKLY
     Route: 058
     Dates: end: 20120519
  15. INSULIN [Concomitant]
     Active Substance: INSULIN NOS
     Route: 058
  16. CANDESARTAN. [Concomitant]
     Active Substance: CANDESARTAN
     Dosage: 2 MG, UNK
  17. FUROSEMIDE. [Concomitant]
     Active Substance: FUROSEMIDE
     Dosage: 40 MG, UNK
  18. NIZATIDINE. [Concomitant]
     Active Substance: NIZATIDINE
  19. ORAMORPH [Concomitant]
     Active Substance: MORPHINE SULFATE
     Dosage: 10MG/5ML 5 ML PRN MAX 1 HOURLY
  20. AMLODIPINE [Concomitant]
     Active Substance: AMLODIPINE BESYLATE
  21. GABAPENTIN. [Concomitant]
     Active Substance: GABAPENTIN
     Dosage: 300 MG, UNK
     Dates: start: 201207
  22. METHOTREXATE. [Suspect]
     Active Substance: METHOTREXATE
     Indication: RHEUMATOID ARTHRITIS
     Dosage: UNK
     Dates: start: 2005, end: 201011

REACTIONS (13)
  - Thrombocytopenia [Unknown]
  - Tonsillar ulcer [Unknown]
  - Angina pectoris [Recovered/Resolved]
  - Drug ineffective [Unknown]
  - Aortic valve disease mixed [Unknown]
  - Troponin T increased [Unknown]
  - Catheter site cellulitis [Unknown]
  - Chills [Unknown]
  - Cellulitis [Unknown]
  - Myocardial ischaemia [Unknown]
  - Chest pain [Unknown]
  - Pyrexia [Unknown]
  - Staphylococcal infection [Unknown]

NARRATIVE: CASE EVENT DATE: 2010
